FAERS Safety Report 15984330 (Version 1)
Quarter: 2019Q1

REPORT INFORMATION
  Report Type: Spontaneous
  Country: FR (occurrence: FR)
  Receive Date: 20190219
  Receipt Date: 20190219
  Transmission Date: 20190418
  Serious: Yes (Other)
  Sender: FDA-Public Use
  Company Number: FR-MYLANLABS-2019M1015527

PATIENT
  Age: 37 Year
  Sex: Female

DRUGS (6)
  1. VALACICLOVIR [Suspect]
     Active Substance: VALACYCLOVIR HYDROCHLORIDE
     Indication: INFECTION
     Dosage: 1000 MILLIGRAM, QD
     Route: 048
     Dates: start: 20160704, end: 20160711
  2. ATARAX [Suspect]
     Active Substance: HYDROXYZINE HYDROCHLORIDE
     Indication: ANXIETY
     Dosage: 25 MG X 3/JOUR + CF COMMENTAIRE
     Route: 048
     Dates: start: 20160703, end: 20160706
  3. TRAMADOL. [Suspect]
     Active Substance: TRAMADOL
     Indication: PAIN
     Dosage: 37.5 MG X 3/J + CF COMMENTAIRE
     Route: 048
     Dates: start: 20160704, end: 20160706
  4. GYNO PEVARYL [Suspect]
     Active Substance: ECONAZOLE NITRATE
     Indication: FUNGAL INFECTION
     Dosage: 150 MILLIGRAM, QD
     Route: 067
     Dates: start: 20160625, end: 20160625
  5. MONURIL [Suspect]
     Active Substance: FOSFOMYCIN TROMETHAMINE
     Indication: URINARY TRACT INFECTION
     Dosage: 3 GRAM, QD
     Route: 048
     Dates: start: 20160710, end: 20160710
  6. PARACETAMOL [Suspect]
     Active Substance: ACETAMINOPHEN
     Indication: PAIN
     Dosage: 325 MG X 3/JOUR + CF COMMENTAIRE
     Route: 048
     Dates: start: 20160704, end: 20160706

REACTIONS (2)
  - Maternal exposure during pregnancy [Recovered/Resolved]
  - Abortion spontaneous [Recovered/Resolved]

NARRATIVE: CASE EVENT DATE: 20160830
